FAERS Safety Report 11752440 (Version 2)
Quarter: 2015Q4

REPORT INFORMATION
  Report Type: Spontaneous
  Country: GB (occurrence: GB)
  Receive Date: 20151118
  Receipt Date: 20151127
  Transmission Date: 20160304
  Serious: Yes (Other)
  Sender: FDA-Public Use
  Company Number: GB-ROCHE-1659948

PATIENT
  Age: 80 Year
  Sex: Female

DRUGS (6)
  1. RITUXIMAB [Suspect]
     Active Substance: RITUXIMAB
     Indication: SPLENOMEGALY
     Dosage: 2 MONTHLY MAINTENANCE THERAPY (TOTAL 3 CYCLES)
     Route: 058
     Dates: start: 20150918, end: 20151024
  2. RITUXIMAB [Suspect]
     Active Substance: RITUXIMAB
     Indication: SPLENIC MARGINAL ZONE LYMPHOMA
     Route: 058
     Dates: start: 20150605
  3. CHLORAMBUCIL [Suspect]
     Active Substance: CHLORAMBUCIL
     Indication: SPLENIC MARGINAL ZONE LYMPHOMA
  4. RITUXIMAB [Suspect]
     Active Substance: RITUXIMAB
     Indication: SPLENIC MARGINAL ZONE LYMPHOMA
  5. CHLORAMBUCIL [Suspect]
     Active Substance: CHLORAMBUCIL
     Indication: SPLENOMEGALY
     Dosage: FOR 10 DAYS
     Route: 048
     Dates: start: 20140908, end: 20150414
  6. RITUXIMAB [Suspect]
     Active Substance: RITUXIMAB
     Indication: SPLENOMEGALY
     Dosage: 8 CYCLES OF INTRAVENOUS RITUXIMAB OF 375MG/M2
     Route: 042
     Dates: start: 20140908, end: 20150414

REACTIONS (1)
  - Progressive multifocal leukoencephalopathy [Unknown]
